FAERS Safety Report 9011597 (Version 2)
Quarter: 2013Q1

REPORT INFORMATION
  Report Type: Spontaneous
  Country: FR (occurrence: FR)
  Receive Date: 20130108
  Receipt Date: 20130129
  Transmission Date: 20140127
  Serious: Yes (Death, Other)
  Sender: FDA-Public Use
  Company Number: FR-ASTRAZENECA-2013SE00796

PATIENT
  Age: 28402 Day
  Sex: Female

DRUGS (12)
  1. BRILIQUE [Suspect]
     Route: 048
     Dates: start: 20121029, end: 20121109
  2. PREVISCAN [Suspect]
     Route: 048
     Dates: end: 20121030
  3. CALCIPARINE [Suspect]
     Dosage: 7500 UI/0.3 ML, 2 DF DAILY
     Route: 058
     Dates: start: 20121106, end: 20121109
  4. KARDEGIC [Suspect]
     Route: 048
     Dates: end: 20121110
  5. CORDARONE [Suspect]
     Route: 048
     Dates: end: 20121111
  6. LEVOTHYROX [Concomitant]
     Route: 048
     Dates: end: 20121111
  7. LASILIX [Concomitant]
     Route: 048
     Dates: start: 20121029
  8. SERESTA [Concomitant]
     Route: 048
  9. INEXIUM [Concomitant]
     Route: 048
  10. SERETIDE DISKUS [Concomitant]
     Route: 055
     Dates: end: 20121112
  11. COVERSYL [Concomitant]
     Route: 048
     Dates: end: 20121111
  12. DIFFU K [Concomitant]
     Route: 048
     Dates: end: 20121111

REACTIONS (4)
  - Subdural haematoma [Fatal]
  - Hypotension [Unknown]
  - Haematoma [Unknown]
  - Hypothermia [Unknown]
